FAERS Safety Report 24936067 (Version 1)
Quarter: 2025Q1

REPORT INFORMATION
  Report Type: Report from Study
  Country: US (occurrence: US)
  Receive Date: 20250206
  Receipt Date: 20250206
  Transmission Date: 20250408
  Serious: Yes (Other)
  Sender: EXELIXIS
  Company Number: US-EXELIXIS-EXL-2024-001325

PATIENT
  Sex: Male
  Weight: 70.31 kg

DRUGS (18)
  1. CABOMETYX [Suspect]
     Active Substance: CABOZANTINIB S-MALATE
     Indication: Renal cancer
     Dosage: 60 MG, QD
     Route: 048
     Dates: start: 20230106
  2. CABOMETYX [Suspect]
     Active Substance: CABOZANTINIB S-MALATE
     Dosage: 40 MG, QD
     Route: 048
     Dates: end: 20241017
  3. TYLENOL [Concomitant]
     Active Substance: ACETAMINOPHEN
  4. VITAMIN C [Concomitant]
     Active Substance: ASCORBIC ACID
  5. ASPIRIN [Concomitant]
     Active Substance: ASPIRIN
  6. SENNA [Concomitant]
     Active Substance: SENNOSIDES
  7. BENZTROPINE [Concomitant]
     Active Substance: BENZTROPINE
  8. COREG [Concomitant]
     Active Substance: CARVEDILOL
  9. PLAVIX [Concomitant]
     Active Substance: CLOPIDOGREL BISULFATE
  10. ATORVASTATIN [Concomitant]
     Active Substance: ATORVASTATIN
  11. FISH OIL [Concomitant]
     Active Substance: FISH OIL
  12. DOCUSATE SODIUM [Concomitant]
     Active Substance: DOCUSATE SODIUM
  13. VITAMINS [Concomitant]
     Active Substance: VITAMINS
  14. FLECAINIDE [Concomitant]
     Active Substance: FLECAINIDE
  15. MEGESTROL [Concomitant]
     Active Substance: MEGESTROL
  16. SEROQUEL [Concomitant]
     Active Substance: QUETIAPINE FUMARATE
  17. TAMSULOSIN [Concomitant]
     Active Substance: TAMSULOSIN
  18. DEPAKOTE [Concomitant]
     Active Substance: DIVALPROEX SODIUM

REACTIONS (1)
  - Malignant neoplasm progression [Unknown]
